FAERS Safety Report 9363715 (Version 3)
Quarter: 2014Q3

REPORT INFORMATION
  Report Type: Report from Study
  Country: ES (occurrence: ES)
  Receive Date: 20130624
  Receipt Date: 20140811
  Transmission Date: 20150326
  Serious: Yes (Other)
  Sender: FDA-Public Use
  Company Number: ES-009507513-1306ESP006654

PATIENT
  Age: 71 Year
  Sex: Male
  Weight: 78 kg

DRUGS (7)
  1. ACENOCOUMAROL [Concomitant]
     Active Substance: ACENOCOUMAROL
     Dosage: 2MGR DAILY DOSE
     Route: 048
     Dates: start: 20121119
  2. CARVEDILOL. [Concomitant]
     Active Substance: CARVEDILOL
     Dosage: 6.25MG DAILY DOSE
     Route: 048
     Dates: start: 20071015
  3. SAXAGLIPTIN [Suspect]
     Active Substance: SAXAGLIPTIN
     Indication: DIABETES MELLITUS
     Dosage: TOTAL DAILY DOSE 5 MGR
     Route: 048
     Dates: start: 20130315, end: 20130410
  4. GLYBURIDE. [Concomitant]
     Active Substance: GLYBURIDE
     Dosage: 10MGR DAILY DOSE
     Route: 048
     Dates: start: 20070622, end: 20130403
  5. EZETIMIBE AND SIMVASTATIN [Suspect]
     Active Substance: EZETIMIBE\SIMVASTATIN
     Indication: ACUTE CORONARY SYNDROME
     Dosage: UNK
     Route: 048
     Dates: start: 20070619, end: 20130403
  6. METFORMIN [Concomitant]
     Active Substance: METFORMIN HYDROCHLORIDE
     Dosage: 2.550MGR DAILY DOSE
     Route: 048
     Dates: start: 20070622
  7. RAMIPRIL. [Concomitant]
     Active Substance: RAMIPRIL
     Dosage: 10MG DAILY DOSE
     Route: 048
     Dates: start: 20070720

REACTIONS (1)
  - Pancreatitis [Recovered/Resolved]

NARRATIVE: CASE EVENT DATE: 20130404
